FAERS Safety Report 15435690 (Version 1)
Quarter: 2018Q3

REPORT INFORMATION
  Report Type: Spontaneous
  Country: US (occurrence: US)
  Receive Date: 20180927
  Receipt Date: 20180927
  Transmission Date: 20181010
  Serious: Yes (Life-Threatening, Other)
  Sender: FDA-Public Use
  Company Number: US-TEVA-2018-US-958777

PATIENT
  Sex: Male

DRUGS (1)
  1. AMIODARONE [Suspect]
     Active Substance: AMIODARONE
     Indication: ATRIAL FIBRILLATION
     Route: 065

REACTIONS (15)
  - Lung disorder [Unknown]
  - Blindness [Unknown]
  - Visual field defect [Unknown]
  - Optic ischaemic neuropathy [Unknown]
  - Visual acuity reduced [Unknown]
  - Adverse event [Unknown]
  - Coordination abnormal [Unknown]
  - Blindness [Unknown]
  - Dry eye [Unknown]
  - Quality of life decreased [Unknown]
  - Off label use [Unknown]
  - Eye injury [Unknown]
  - Toxicity to various agents [Unknown]
  - Vitreous floaters [Unknown]
  - Optic neuropathy [Unknown]

NARRATIVE: CASE EVENT DATE: 201702
